FAERS Safety Report 10669992 (Version 2)
Quarter: 2015Q1

REPORT INFORMATION
  Report Type: Spontaneous
  Country: GB (occurrence: GB)
  Receive Date: 20141223
  Receipt Date: 20150109
  Transmission Date: 20150720
  Serious: Yes (Other)
  Sender: FDA-Public Use
  Company Number: GB-AUROBINDO-AUR-APL-2014-13071

PATIENT
  Age: 26 Year
  Weight: 50.79 kg

DRUGS (2)
  1. FLUOXETINE 60MG [Suspect]
     Active Substance: FLUOXETINE HYDROCHLORIDE
     Indication: OBSESSIVE-COMPULSIVE DISORDER
     Dosage: 20 MG, ONCE A DAY
     Route: 065
     Dates: start: 200806, end: 200902
  2. FLUOXETINE 60MG [Suspect]
     Active Substance: FLUOXETINE HYDROCHLORIDE
     Dosage: 60 MG, ONCE A DAY, MORNING
     Route: 048
     Dates: start: 200902, end: 20091104

REACTIONS (4)
  - Micturition urgency [Recovered/Resolved]
  - Pollakiuria [Recovered/Resolved]
  - Alopecia [Recovered/Resolved]
  - Iritis [Recovered/Resolved]

NARRATIVE: CASE EVENT DATE: 2009
